FAERS Safety Report 10252132 (Version 1)
Quarter: 2014Q2

REPORT INFORMATION
  Report Type: Spontaneous
  Country: GB (occurrence: None)
  Receive Date: 20140619
  Receipt Date: 20140619
  Transmission Date: 20141212
  Serious: Yes (Other)
  Sender: FDA-Public Use
  Company Number: AUR-APL-2014-06399

PATIENT
  Age: 90 Year
  Sex: Female

DRUGS (3)
  1. SIMVASTATIN (SIMVASTATIN) UNKNOWN, UNKNOWN [Suspect]
     Indication: PROPHYLAXIS
     Route: 048
  2. CLARITHROMYCIN [Suspect]
     Indication: PRODUCT USED FOR UNKNOWN INDICATION
     Dates: start: 20130804
  3. FOLIC ACID (FOLIC ACID) [Concomitant]

REACTIONS (4)
  - Drug interaction [None]
  - Renal failure [None]
  - Renal disorder [None]
  - Off label use [None]
